FAERS Safety Report 24860693 (Version 1)
Quarter: 2025Q1

REPORT INFORMATION
  Report Type: Spontaneous
  Country: US (occurrence: US)
  Receive Date: 20250120
  Receipt Date: 20250120
  Transmission Date: 20250409
  Serious: No
  Sender: ABBVIE
  Company Number: US-ABBVIE-6086274

PATIENT
  Age: 74 Year
  Sex: Female

DRUGS (3)
  1. DALVANCE [Suspect]
     Active Substance: DALBAVANCIN HYDROCHLORIDE
     Indication: Enterococcal bacteraemia
     Route: 042
     Dates: start: 20241203, end: 20241203
  2. DALVANCE [Suspect]
     Active Substance: DALBAVANCIN HYDROCHLORIDE
     Indication: Enterococcal bacteraemia
     Route: 042
     Dates: start: 20250109, end: 20250109
  3. DALVANCE [Suspect]
     Active Substance: DALBAVANCIN HYDROCHLORIDE
     Indication: Enterococcal bacteraemia
     Route: 042
     Dates: start: 20241210, end: 20241210

REACTIONS (2)
  - Tinnitus [Unknown]
  - Off label use [Unknown]

NARRATIVE: CASE EVENT DATE: 20241203
